FAERS Safety Report 4799612-5 (Version None)
Quarter: 2005Q4

REPORT INFORMATION
  Report Type: 
  Country: None (occurrence: None)
  Receive Date: 20051014
  Receipt Date: 20051005
  Transmission Date: 20060501
  Serious: Yes (Disabling)
  Sender: FDA-Public Use
  Company Number: PR-MERCK-0510USA04839

PATIENT
  Sex: Male

DRUGS (6)
  1. VIOXX [Suspect]
     Indication: ARTHRALGIA
     Route: 048
     Dates: start: 19990101
  2. VIOXX [Suspect]
     Indication: INTERVERTEBRAL DISC PROTRUSION
     Route: 048
     Dates: start: 19990101
  3. CELEBREX [Suspect]
     Indication: ARTHRALGIA
     Route: 065
     Dates: start: 19990101
  4. CELEBREX [Suspect]
     Indication: INTERVERTEBRAL DISC PROTRUSION
     Route: 065
     Dates: start: 19990101
  5. BEXTRA [Suspect]
     Indication: ARTHRALGIA
     Route: 065
     Dates: start: 19990101
  6. BEXTRA [Suspect]
     Indication: INTERVERTEBRAL DISC PROTRUSION
     Route: 065
     Dates: start: 19990101

REACTIONS (13)
  - ANOREXIA [None]
  - ASTHENIA [None]
  - CARDIOVASCULAR DISORDER [None]
  - CHEST PAIN [None]
  - EMOTIONAL DISORDER [None]
  - FATIGUE [None]
  - GAIT DISTURBANCE [None]
  - HYPERTENSION [None]
  - HYPOKINESIA [None]
  - OEDEMA PERIPHERAL [None]
  - PAIN [None]
  - RENAL DISORDER [None]
  - RENAL FAILURE [None]
